FAERS Safety Report 13951761 (Version 1)
Quarter: 2017Q3

REPORT INFORMATION
  Report Type: Spontaneous
  Country: FR (occurrence: FR)
  Receive Date: 20170908
  Receipt Date: 20170908
  Transmission Date: 20171128
  Serious: Yes (Other)
  Sender: FDA-Public Use
  Company Number: FR-MERCK KGAA-2025793

PATIENT
  Age: 67 Year
  Sex: Female

DRUGS (6)
  1. OMEGA 3 [Concomitant]
     Active Substance: OMEGA-3 FATTY ACIDS
  2. LEVOTHYROX 50 NF [Suspect]
     Active Substance: LEVOTHYROXINE
     Dates: start: 201703
  3. ISOPTIN HYDROCHLORIDE [Concomitant]
     Dates: end: 201612
  4. NOVOTHYROX [Suspect]
     Active Substance: LEVOTHYROXINE SODIUM
     Indication: POST PROCEDURAL HYPOTHYROIDISM
     Dates: start: 201703, end: 201703
  5. LEVOTHYROX 25 NF [Suspect]
     Active Substance: LEVOTHYROXINE SODIUM
     Dates: start: 20170331
  6. CARTILAMINE [Concomitant]

REACTIONS (8)
  - Wrong technique in product usage process [Unknown]
  - Arrhythmia [Unknown]
  - Alopecia [Unknown]
  - Self-medication [None]
  - Palpitations [Not Recovered/Not Resolved]
  - Hyperhidrosis [Unknown]
  - Drug titration error [None]
  - Hyperthyroidism [None]

NARRATIVE: CASE EVENT DATE: 20170331
